FAERS Safety Report 5135457-4 (Version None)
Quarter: 2006Q4

REPORT INFORMATION
  Report Type: 
  Country: None (occurrence: None)
  Receive Date: 20061026
  Receipt Date: 20060829
  Transmission Date: 20070319
  Serious: Yes (Death, Hospitalization)
  Sender: FDA-Public Use
  Company Number: US-BRACCO-BDI-008589

PATIENT
  Sex: Male

DRUGS (2)
  1. GASTROGRAFIN [Suspect]
     Indication: GUN SHOT WOUND
     Route: 048
     Dates: start: 20011226, end: 20011226
  2. GASTROGRAFIN [Suspect]
     Indication: OESOPHAGRAM
     Route: 048
     Dates: start: 20011226, end: 20011226

REACTIONS (8)
  - ACUTE RESPIRATORY DISTRESS SYNDROME [None]
  - DRUG ADMINISTRATION ERROR [None]
  - DYSPNOEA [None]
  - LUNG ABSCESS [None]
  - LUNG INJURY [None]
  - MULTI-ORGAN FAILURE [None]
  - PNEUMONIA ASPIRATION [None]
  - RESPIRATORY FAILURE [None]
